FAERS Safety Report 6491391-9 (Version None)
Quarter: 2009Q4

REPORT INFORMATION
  Report Type: 
  Country: None (occurrence: None)
  Receive Date: 20091211
  Receipt Date: 20091201
  Transmission Date: 20100525
  Serious: Yes (Other)
  Sender: FDA-Public Use
  Company Number: LV-WYE-H12468709

PATIENT
  Sex: Female
  Weight: 69.1 kg

DRUGS (2)
  1. DESVENLAFAXINE SUCCINATE MONOHYDRATE [Suspect]
     Indication: MAJOR DEPRESSION
     Route: 048
     Dates: start: 20091114, end: 20091201
  2. ALPRAZOLAM [Concomitant]
     Indication: DEPRESSION
     Dosage: UNKNOWN
     Dates: start: 20091130, end: 20091201

REACTIONS (2)
  - INTENTIONAL OVERDOSE [None]
  - SUICIDE ATTEMPT [None]
